FAERS Safety Report 12371424 (Version 1)
Quarter: 2016Q2

REPORT INFORMATION
  Report Type: Spontaneous
  Country: IN (occurrence: IN)
  Receive Date: 20160516
  Receipt Date: 20160516
  Transmission Date: 20160815
  Serious: Yes (Hospitalization)
  Sender: FDA-Public Use
  Company Number: IN-EDISONTHERAPEUTICS-2016-IN-000001

PATIENT
  Age: 28 Year
  Sex: Female
  Weight: 76 kg

DRUGS (3)
  1. METHERGINE [Suspect]
     Active Substance: METHYLERGONOVINE MALEATE
     Dosage: 0.2MG,
     Route: 015
  2. OXYTOCIN. [Suspect]
     Active Substance: OXYTOCIN
     Route: 042
  3. CARBOPROST [Suspect]
     Active Substance: CARBOPROST
     Dosage: 250 UG,
     Route: 030

REACTIONS (8)
  - Chest pain [Unknown]
  - Electrocardiogram abnormal [Recovered/Resolved]
  - Incorrect route of drug administration [Unknown]
  - Dyspnoea [Unknown]
  - Blood pressure increased [Unknown]
  - Headache [Unknown]
  - Heart rate increased [Recovered/Resolved]
  - Crepitations [Unknown]
